FAERS Safety Report 16262013 (Version 21)
Quarter: 2025Q4

REPORT INFORMATION
  Report Type: Report from Study
  Country: US (occurrence: US)
  Receive Date: 20190501
  Receipt Date: 20251231
  Transmission Date: 20260118
  Serious: Yes (Hospitalization, Other)
  Sender: TAKEDA
  Company Number: US-SHIRE-US201913454

PATIENT
  Age: 1 Year
  Sex: Male
  Weight: 19.955 kg

DRUGS (31)
  1. VELAGLUCERASE ALFA [Suspect]
     Active Substance: VELAGLUCERASE ALFA
     Indication: Gaucher^s disease
     Dosage: UNK UNK, 1/WEEK
     Dates: start: 20180802
  2. VELAGLUCERASE ALFA [Suspect]
     Active Substance: VELAGLUCERASE ALFA
     Dosage: 1200 INTERNATIONAL UNIT, 1/WEEK
  3. VELAGLUCERASE ALFA [Suspect]
     Active Substance: VELAGLUCERASE ALFA
     Dosage: 1600 INTERNATIONAL UNIT, 1/WEEK
  4. VELAGLUCERASE ALFA [Suspect]
     Active Substance: VELAGLUCERASE ALFA
     Dosage: 2000 INTERNATIONAL UNIT, 1/WEEK
  5. SODIUM CHLORIDE [Concomitant]
     Active Substance: SODIUM CHLORIDE
     Dosage: UNK
  6. STERILE WATER [Concomitant]
     Active Substance: WATER
     Dosage: UNK
  7. EPINEPHRINE [Concomitant]
     Active Substance: EPINEPHRINE
     Dosage: UNK
  8. CLONAZEPAM [Concomitant]
     Active Substance: CLONAZEPAM
     Dosage: UNK
  9. VALPROIC ACID [Concomitant]
     Active Substance: VALPROIC ACID
     Dosage: UNK
  10. ACETYLCYSTEINE [Concomitant]
     Active Substance: ACETYLCYSTEINE
     Dosage: UNK
  11. BACLOFEN [Concomitant]
     Active Substance: BACLOFEN
     Dosage: UNK
  12. ONFI [Concomitant]
     Active Substance: CLOBAZAM
     Dosage: UNK
  13. HEPARIN [Concomitant]
     Active Substance: HEPARIN SODIUM
     Dosage: UNK
  14. VALIUM [Concomitant]
     Active Substance: DIAZEPAM
     Dosage: UNK
  15. SODIUM CHLORIDE [Concomitant]
     Active Substance: SODIUM CHLORIDE
     Dosage: UNK
  16. FYCOMPA [Concomitant]
     Active Substance: PERAMPANEL
     Dosage: UNK
  17. OMEPRAZOLE [Concomitant]
     Active Substance: OMEPRAZOLE
     Dosage: UNK
  18. LEVOCARNITINE [Concomitant]
     Active Substance: LEVOCARNITINE
     Dosage: UNK
  19. TOBRAMYCIN [Concomitant]
     Active Substance: TOBRAMYCIN
     Dosage: UNK
  20. FLONASE ALLERGY RELIEF [Concomitant]
     Active Substance: FLUTICASONE PROPIONATE
     Dosage: UNK
  21. VENTOLIN HFA [Concomitant]
     Active Substance: ALBUTEROL SULFATE
     Dosage: UNK
  22. SYMBICORT [Concomitant]
     Active Substance: BUDESONIDE\FORMOTEROL FUMARATE DIHYDRATE
     Dosage: UNK
  23. ALBUTEROL SULFATE [Concomitant]
     Active Substance: ALBUTEROL SULFATE
     Dosage: UNK
  24. AMANTADINE [Concomitant]
     Active Substance: AMANTADINE
     Dosage: UNK
  25. GABAPENTIN [Concomitant]
     Active Substance: GABAPENTIN
     Dosage: UNK
  26. MAGNESIUM [Concomitant]
     Active Substance: MAGNESIUM
     Dosage: UNK
  27. CLARITIN [Concomitant]
     Active Substance: LORATADINE
     Dosage: UNK
  28. Ironup [Concomitant]
     Dosage: UNK
  29. COLCHICINE [Concomitant]
     Active Substance: COLCHICINE
     Dosage: UNK
  30. SENNA [Concomitant]
     Active Substance: SENNOSIDES
     Dosage: UNK
  31. CULTURELLE [Concomitant]
     Active Substance: LACTOBACILLUS RHAMNOSUS
     Dosage: UNK

REACTIONS (17)
  - Pneumonia [Recovering/Resolving]
  - Acute respiratory distress syndrome [Recovering/Resolving]
  - Rhinovirus infection [Recovering/Resolving]
  - Enterovirus infection [Recovering/Resolving]
  - Seizure [Unknown]
  - Vascular device infection [Unknown]
  - Respiratory disorder [Unknown]
  - COVID-19 [Unknown]
  - Pyrexia [Unknown]
  - Sepsis [Unknown]
  - Nasopharyngitis [Unknown]
  - Weight decreased [Unknown]
  - Off label use [Unknown]
  - Infection [Unknown]
  - Dermatitis allergic [Unknown]
  - Sensitive skin [Unknown]
  - Haematological infection [Unknown]

NARRATIVE: CASE EVENT DATE: 20180802
